FAERS Safety Report 21842640 (Version 1)
Quarter: 2023Q1

REPORT INFORMATION
  Report Type: Spontaneous
  Country: US (occurrence: US)
  Receive Date: 20230110
  Receipt Date: 20230110
  Transmission Date: 20230418
  Serious: No
  Sender: FDA-Public Use
  Company Number: US-SA-SAC20230109001100

PATIENT
  Sex: Female

DRUGS (16)
  1. DUPIXENT [Suspect]
     Active Substance: DUPILUMAB
     Indication: Illness
     Dosage: 300 MG, QOW
     Route: 058
  2. OXYGEN [Concomitant]
     Active Substance: OXYGEN
  3. XYZAL [Concomitant]
     Active Substance: LEVOCETIRIZINE DIHYDROCHLORIDE
  4. CELEBREX [Concomitant]
     Active Substance: CELECOXIB
  5. OFEV [Concomitant]
     Active Substance: NINTEDANIB
  6. LOPERAMIDE [Concomitant]
     Active Substance: LOPERAMIDE
  7. XANAX [Concomitant]
     Active Substance: ALPRAZOLAM
  8. TRELEGY ELLIPTA [Concomitant]
     Active Substance: FLUTICASONE FUROATE\UMECLIDINIUM BROMIDE\VILANTEROL TRIFENATATE
  9. IPRATROPIUM [Concomitant]
     Active Substance: IPRATROPIUM
  10. ALBUTEROL [Concomitant]
     Active Substance: ALBUTEROL
  11. MYRBETRIQ [Concomitant]
     Active Substance: MIRABEGRON
  12. ACETAMINOPHEN\HYDROCODONE [Concomitant]
     Active Substance: ACETAMINOPHEN\HYDROCODONE
  13. CEFADROXIL [Concomitant]
     Active Substance: CEFADROXIL
  14. ACYCLOVIR [Concomitant]
     Active Substance: ACYCLOVIR
  15. ZANAFLEX [Concomitant]
     Active Substance: TIZANIDINE HYDROCHLORIDE
  16. ASPIRIN [Concomitant]
     Active Substance: ASPIRIN
     Dosage: UNK

REACTIONS (1)
  - Dyspnoea [Unknown]
